FAERS Safety Report 22600542 (Version 1)
Quarter: 2023Q2

REPORT INFORMATION
  Report Type: Spontaneous
  Country: US (occurrence: US)
  Receive Date: 20230614
  Receipt Date: 20230614
  Transmission Date: 20230721
  Serious: No
  Sender: FDA-Public Use
  Company Number: US-SEPTODONT-2023017331

PATIENT
  Age: 40 Year
  Sex: Female

DRUGS (1)
  1. MEPIVACAINE [Suspect]
     Active Substance: MEPIVACAINE HYDROCHLORIDE
     Indication: Dental local anaesthesia
     Dosage: 1.8 ML.
     Route: 004

REACTIONS (1)
  - Drug ineffective [Recovered/Resolved]
